FAERS Safety Report 8215089-1 (Version None)
Quarter: 2012Q1

REPORT INFORMATION
  Report Type: 
  Country: None (occurrence: None)
  Receive Date: 20120316
  Receipt Date: 20120219
  Transmission Date: 20120608
  Serious: Yes (Hospitalization, Other)
  Sender: FDA-Public Use
  Company Number: PHHY2012ES020327

PATIENT
  Age: 81 Year
  Sex: Female

DRUGS (6)
  1. TELMISARTAN [Concomitant]
  2. ATORVASTATIN [Concomitant]
  3. METFORMIN HYDROCHLORIDE [Suspect]
     Indication: TYPE 2 DIABETES MELLITUS
     Dosage: 850 MG, Q8H
     Route: 048
  4. CARVEDILOL [Concomitant]
  5. TORSEMIDE [Concomitant]
  6. OMEPRAZOLE [Concomitant]

REACTIONS (11)
  - VOMITING [None]
  - RENAL FAILURE ACUTE [None]
  - BODY TEMPERATURE DECREASED [None]
  - RENAL TUBULAR NECROSIS [None]
  - ANURIA [None]
  - DIABETIC NEPHROPATHY [None]
  - DIARRHOEA HAEMORRHAGIC [None]
  - BRADYPHRENIA [None]
  - LACTIC ACIDOSIS [None]
  - DISORIENTATION [None]
  - COGNITIVE DISORDER [None]
